FAERS Safety Report 17072746 (Version 1)
Quarter: 2019Q4

REPORT INFORMATION
  Report Type: Spontaneous
  Country: US (occurrence: US)
  Receive Date: 20191028
  Receipt Date: 20191028
  Transmission Date: 20200122
  Serious: No
  Sender: FDA-Public Use
  Company Number: None

PATIENT

DRUGS (2)
  1. FAMOTIDINE. [Suspect]
     Active Substance: FAMOTIDINE
     Route: 042
  2. FOSPHENYTOIN [Suspect]
     Active Substance: FOSPHENYTOIN
     Dosage: ?          OTHER ROUTE:IM + INTRAVNOUS?

REACTIONS (1)
  - Product packaging confusion [None]
